APPROVED DRUG PRODUCT: METHYLPHENIDATE HYDROCHLORIDE
Active Ingredient: METHYLPHENIDATE HYDROCHLORIDE
Strength: 36MG
Dosage Form/Route: TABLET, EXTENDED RELEASE;ORAL
Application: A210818 | Product #003
Applicant: ALVOGEN INC
Approved: Nov 30, 2018 | RLD: No | RS: No | Type: DISCN